FAERS Safety Report 10044032 (Version 2)
Quarter: 2014Q1

REPORT INFORMATION
  Report Type: Spontaneous
  Country: US (occurrence: US)
  Receive Date: 20140328
  Receipt Date: 20140328
  Transmission Date: 20141002
  Serious: No
  Sender: FDA-Public Use
  Company Number: US-MYLANLABS-2013S1018942

PATIENT
  Age: 23 Year
  Sex: Female
  Weight: 52.16 kg

DRUGS (5)
  1. EMSAM (SELEGILINE TRANSDERMAL SYSTEM) [Suspect]
     Indication: BIPOLAR DISORDER
     Dosage: Q D
     Route: 062
     Dates: start: 20130423, end: 20130523
  2. EMSAM (SELEGILINE TRANSDERMAL SYSTEM) [Suspect]
     Indication: OFF LABEL USE
     Dosage: Q D
     Route: 062
     Dates: start: 20130423, end: 20130523
  3. GILDESS FE [Suspect]
     Indication: ORAL CONTRACEPTION
     Route: 048
     Dates: start: 201305, end: 201305
  4. LAMOTRIGINE [Concomitant]
     Route: 048
  5. LOESTRIN-FE [Concomitant]
     Indication: ORAL CONTRACEPTION
     Dosage: AS DIRECTED
     Route: 048

REACTIONS (2)
  - Mental disorder [Recovered/Resolved]
  - Hallucination, auditory [Recovered/Resolved]
